FAERS Safety Report 7694550-2 (Version None)
Quarter: 2011Q3

REPORT INFORMATION
  Report Type: 
  Country: None (occurrence: None)
  Receive Date: 20110819
  Receipt Date: 20110810
  Transmission Date: 20111222
  Serious: Yes (Other)
  Sender: FDA-Public Use
  Company Number: AU-AMGEN-AUSSP2011037512

PATIENT
  Age: 69 Year
  Sex: Male

DRUGS (8)
  1. NPLATE [Suspect]
     Indication: IDIOPATHIC THROMBOCYTOPENIC PURPURA
     Dosage: 80 A?G, ONE TIME DOSE
     Dates: start: 20090826, end: 20090826
  2. NPLATE [Suspect]
     Dosage: 170 A?G, ONE TIME DOSE
     Dates: start: 20090909, end: 20090909
  3. NPLATE [Suspect]
     Dosage: 600 A?G, ONE TIME DOSE
     Dates: start: 20091023
  4. NPLATE [Suspect]
     Dosage: 850 A?G, QWK
     Dates: start: 20090411, end: 20100630
  5. NPLATE [Suspect]
     Dosage: 330 A?G, ONE TIME DOSE
     Dates: start: 20090923, end: 20090923
  6. NPLATE [Suspect]
     Dosage: 490 A?G, ONE TIME DOSE
     Dates: start: 20091007, end: 20091007
  7. NPLATE [Suspect]
     Dosage: 670 A?G, ONE TIME DOSE
     Dates: start: 20091030, end: 20091030
  8. NPLATE [Suspect]
     Dosage: 410 A?G, ONE TIME DOSE
     Dates: start: 20090930, end: 20090930

REACTIONS (2)
  - BONE MARROW RETICULIN FIBROSIS [None]
  - PLATELET COUNT DECREASED [None]
